FAERS Safety Report 14854266 (Version 5)
Quarter: 2018Q4

REPORT INFORMATION
  Report Type: Spontaneous
  Country: DE (occurrence: DE)
  Receive Date: 20180507
  Receipt Date: 20181113
  Transmission Date: 20190204
  Serious: Yes (Hospitalization, Other)
  Sender: FDA-Public Use
  Company Number: DE-MYLANLABS-2018M1028650

PATIENT
  Age: 15 Year
  Sex: Female
  Weight: 60 kg

DRUGS (6)
  1. AZATHIOPRINE. [Suspect]
     Active Substance: AZATHIOPRINE
     Indication: PRODUCT USED FOR UNKNOWN INDICATION
     Dosage: UNK
     Route: 065
     Dates: start: 20130601, end: 20130601
  2. GARDASIL [Suspect]
     Active Substance: HUMAN PAPILLOMAVIRUS QUADRIVALENT (TYPES 6, 11, 16, AND 18) VACCINE, RECOMBINANT
     Dosage: UNK
     Route: 030
  3. MIDOL MENSTRUAL COMPLETE [Concomitant]
     Indication: PRODUCT USED FOR UNKNOWN INDICATION
     Dosage: UNK
     Dates: start: 20120801, end: 20130301
  4. CICLOSPORIN [Suspect]
     Active Substance: CYCLOSPORINE
     Indication: PRODUCT USED FOR UNKNOWN INDICATION
     Dosage: UNK
  5. GARDASIL [Suspect]
     Active Substance: HUMAN PAPILLOMAVIRUS QUADRIVALENT (TYPES 6, 11, 16, AND 18) VACCINE, RECOMBINANT
     Indication: IMMUNISATION
     Dosage: UNK
     Route: 030
  6. GARDASIL [Suspect]
     Active Substance: HUMAN PAPILLOMAVIRUS QUADRIVALENT (TYPES 6, 11, 16, AND 18) VACCINE, RECOMBINANT
     Dosage: UNK
     Route: 030

REACTIONS (36)
  - Application site pain [Unknown]
  - Pyelonephritis [Recovered/Resolved]
  - Mood altered [Unknown]
  - Cyst [Unknown]
  - Respiratory tract infection [Unknown]
  - Urinary tract infection [Unknown]
  - Diarrhoea haemorrhagic [Unknown]
  - Asthma [Unknown]
  - Panic attack [Not Recovered/Not Resolved]
  - Application site swelling [Unknown]
  - Haematuria [Unknown]
  - General physical health deterioration [Unknown]
  - Colitis ulcerative [Recovered/Resolved]
  - Nasopharyngitis [Unknown]
  - Conversion disorder [Not Recovered/Not Resolved]
  - Prerenal failure [Recovered/Resolved]
  - Proctitis ulcerative [Unknown]
  - Fungal infection [Unknown]
  - Abdominal pain lower [Unknown]
  - Conjunctivitis [Unknown]
  - Vomiting [Recovered/Resolved]
  - Abdominal pain upper [Unknown]
  - Epstein-Barr virus infection [Unknown]
  - Immunosuppression [Unknown]
  - Crying [Unknown]
  - Seasonal allergy [Recovered/Resolved]
  - Conjunctivitis allergic [Unknown]
  - Drug intolerance [Unknown]
  - Nausea [Recovering/Resolving]
  - Proteinuria [Unknown]
  - Anxiety [Recovered/Resolved]
  - Iron deficiency anaemia [Not Recovered/Not Resolved]
  - Helicobacter gastritis [Unknown]
  - Leukopenia [Recovered/Resolved]
  - Application site erythema [Unknown]
  - Clostridium difficile infection [Unknown]

NARRATIVE: CASE EVENT DATE: 20130101
